FAERS Safety Report 9472339 (Version 1)
Quarter: 2013Q3

REPORT INFORMATION
  Report Type: Spontaneous
  Country: US (occurrence: None)
  Receive Date: 20130821
  Receipt Date: 20130821
  Transmission Date: 20140515
  Serious: Yes (Life-Threatening, Hospitalization, Disabling, Other)
  Sender: FDA-Public Use
  Company Number: None

PATIENT
  Age: 22 Year
  Sex: Female
  Weight: 88.91 kg

DRUGS (1)
  1. LARIAM [Suspect]
     Indication: MALARIA
     Dates: start: 20030201, end: 20130608

REACTIONS (15)
  - Dizziness [None]
  - Nausea [None]
  - Anxiety [None]
  - Depression [None]
  - Convulsion [None]
  - Post-traumatic stress disorder [None]
  - Amnesia [None]
  - Tinnitus [None]
  - Sleep apnoea syndrome [None]
  - Narcolepsy [None]
  - Cataplexy [None]
  - Convulsion [None]
  - Neuropathy peripheral [None]
  - Pulmonary arterial hypertension [None]
  - Thyroid disorder [None]
